FAERS Safety Report 7626935-4 (Version None)
Quarter: 2011Q3

REPORT INFORMATION
  Report Type: 
  Country: None (occurrence: None)
  Receive Date: 20110721
  Receipt Date: 20110711
  Transmission Date: 20111222
  Serious: Yes (Hospitalization)
  Sender: FDA-Public Use
  Company Number: MW-PFIZER INC-2011155810

PATIENT
  Age: 34 Year

DRUGS (5)
  1. COTRIM [Concomitant]
     Dosage: UNK
     Dates: start: 20080715
  2. RALTEGRAVIR [Suspect]
     Dosage: UNK
     Dates: start: 20110118
  3. ISONIAZID [Concomitant]
     Dosage: UNK
     Dates: start: 20101210
  4. RIFABUTIN [Suspect]
     Dosage: UNK
     Dates: start: 20110118
  5. KALETRA [Suspect]
     Dosage: UNK
     Dates: start: 20110118

REACTIONS (1)
  - MENINGITIS BACTERIAL [None]
